FAERS Safety Report 26116926 (Version 1)
Quarter: 2025Q4

REPORT INFORMATION
  Report Type: Spontaneous
  Country: US (occurrence: US)
  Receive Date: 20251203
  Receipt Date: 20251203
  Transmission Date: 20260118
  Serious: No
  Sender: CELLTRION
  Company Number: US-CELLTRION INC.-2025US035990

PATIENT

DRUGS (6)
  1. ADALIMUMAB [Suspect]
     Active Substance: ADALIMUMAB
     Indication: Rheumatoid arthritis
     Dosage: INJECT 40MG EVERY 2 WEEKS, SQ
     Route: 058
     Dates: start: 202502
  2. ADALIMUMAB [Suspect]
     Active Substance: ADALIMUMAB
  3. METHOTREXATE [Concomitant]
     Active Substance: METHOTREXATE
     Dosage: THERAPY DATES: UNK TO ONGOING
  4. ROSUVASTATIN [Concomitant]
     Active Substance: ROSUVASTATIN
     Dosage: THERAPY DATES: UNK TO ONGOING
  5. FOLIC ACID [Concomitant]
     Active Substance: FOLIC ACID
     Dosage: THERAPY DATES: UNK TO ONGOING
  6. SOLIFENACIN [Concomitant]
     Active Substance: SOLIFENACIN
     Dosage: THERAPY DATES: UNK TO ONGOING

REACTIONS (3)
  - Device malfunction [Recovered/Resolved]
  - Accidental exposure to product [Recovered/Resolved]
  - Exposure via skin contact [Recovered/Resolved]

NARRATIVE: CASE EVENT DATE: 20250830
